FAERS Safety Report 20256099 (Version 1)
Quarter: 2021Q4

REPORT INFORMATION
  Report Type: Spontaneous
  Country: US (occurrence: US)
  Receive Date: 20211230
  Receipt Date: 20211230
  Transmission Date: 20220303
  Serious: Yes (Other)
  Sender: FDA-Public Use
  Company Number: US-PROCTER_AND_GAMBLE-GS21113444

PATIENT

DRUGS (4)
  1. SECRET ANTIPERSPIRANT SPRING BREEZE [Suspect]
     Active Substance: ALUMINUM CHLOROHYDRATE
     Route: 061
  2. SECRET CLINICAL STRENGTH LIGHT AND FRESH [Suspect]
     Active Substance: ALUMINUM ZIRCONIUM TRICHLOROHYDREX GLY
     Route: 061
  3. SECRET CLINICAL STRENGTH SOFT WATERPROOF [Suspect]
     Active Substance: ALUMINUM ZIRCONIUM TRICHLOROHYDREX GLY
     Route: 061
  4. ALUMINUM ZIRCONIUM TRICHLOROHYDREX GLY [Suspect]
     Active Substance: ALUMINUM ZIRCONIUM TRICHLOROHYDREX GLY
     Route: 061

REACTIONS (1)
  - Breast cancer [Unknown]

NARRATIVE: CASE EVENT DATE: 20150101
